FAERS Safety Report 17681109 (Version 2)
Quarter: 2020Q2

REPORT INFORMATION
  Report Type: Spontaneous
  Country: US (occurrence: US)
  Receive Date: 20200417
  Receipt Date: 20200501
  Transmission Date: 20200714
  Serious: Yes (Hospitalization, Other)
  Sender: FDA-Public Use
  Company Number: US-BIOMARINAP-US-2020-129662

PATIENT
  Age: 33 Year
  Sex: Female
  Weight: 57.7 kg

DRUGS (5)
  1. PROVENTIL [Concomitant]
     Active Substance: ALBUTEROL
     Indication: PRODUCT USED FOR UNKNOWN INDICATION
  2. LOVENOX [Concomitant]
     Active Substance: ENOXAPARIN SODIUM
     Indication: PRODUCT USED FOR UNKNOWN INDICATION
  3. ZOSYN [Concomitant]
     Active Substance: PIPERACILLIN SODIUM\TAZOBACTAM SODIUM
     Indication: PRODUCT USED FOR UNKNOWN INDICATION
  4. PANTOPRAZOLE [Concomitant]
     Active Substance: PANTOPRAZOLE
     Indication: PRODUCT USED FOR UNKNOWN INDICATION
  5. KUVAN [Suspect]
     Active Substance: SAPROPTERIN DIHYDROCHLORIDE
     Indication: PHENYLKETONURIA
     Dosage: 1200 MILLIGRAM, QD
     Route: 048
     Dates: start: 20101104

REACTIONS (15)
  - Colon cancer [Recovering/Resolving]
  - Hyponatraemia [Recovering/Resolving]
  - Maternal exposure during pregnancy [Recovered/Resolved]
  - Dysphagia [Recovering/Resolving]
  - Small intestinal obstruction [Recovering/Resolving]
  - Facial paralysis [Recovering/Resolving]
  - Abortion spontaneous [Recovering/Resolving]
  - Hypophagia [Recovering/Resolving]
  - Electrolyte imbalance [Recovering/Resolving]
  - Metastases to liver [Recovering/Resolving]
  - Bandaemia [Recovering/Resolving]
  - Speech disorder [Recovering/Resolving]
  - Metastases to spine [Recovering/Resolving]
  - Large intestine perforation [Recovering/Resolving]
  - Constipation [Recovering/Resolving]

NARRATIVE: CASE EVENT DATE: 20200323
